FAERS Safety Report 9124010 (Version 1)
Quarter: 2013Q1

REPORT INFORMATION
  Report Type: Spontaneous
  Country: US (occurrence: US)
  Receive Date: 20130116
  Receipt Date: 20130116
  Transmission Date: 20140127
  Serious: No
  Sender: FDA-Public Use
  Company Number: US-PFIZER INC-2013016465

PATIENT
  Age: 74 Year
  Sex: Female
  Weight: 72.56 kg

DRUGS (4)
  1. LYRICA [Suspect]
     Indication: FIBROMYALGIA
     Dosage: 75 MG, DAILY
     Dates: end: 201301
  2. LYRICA [Suspect]
     Dosage: 100 MG, DAILY
     Dates: start: 201301
  3. NABUMETONE [Concomitant]
     Indication: OSTEOARTHRITIS
     Dosage: 750 MG, DAILY
  4. ATENOLOL [Concomitant]
     Indication: HYPERTENSION
     Dosage: 25 MG TABLET, BY CUTTING THE TABLET IN TO HALF DAILY

REACTIONS (7)
  - Feeling abnormal [Unknown]
  - Impaired driving ability [Unknown]
  - Drug ineffective [Unknown]
  - Dizziness [Unknown]
  - Constipation [Unknown]
  - Functional gastrointestinal disorder [Unknown]
  - Drug intolerance [Unknown]
